FAERS Safety Report 6036391-8 (Version None)
Quarter: 2009Q1

REPORT INFORMATION
  Report Type: 
  Country: None (occurrence: None)
  Receive Date: 20090113
  Receipt Date: 20090106
  Transmission Date: 20090719
  Serious: Yes (Hospitalization, Disabling, Other)
  Sender: FDA-Public Use
  Company Number: AU-ALLERGAN-0900107US

PATIENT
  Sex: Female

DRUGS (1)
  1. CHLORAMPHENICOL [Suspect]
     Indication: CONJUNCTIVITIS
     Route: 047

REACTIONS (6)
  - BLINDNESS [None]
  - CORNEAL ABSCESS [None]
  - CORNEAL DISORDER [None]
  - CORNEAL SCAR [None]
  - CORNEAL THINNING [None]
  - PSEUDOMONAS INFECTION [None]
